FAERS Safety Report 5704450-2 (Version None)
Quarter: 2008Q2

REPORT INFORMATION
  Report Type: 
  Country: None (occurrence: None)
  Receive Date: 20080411
  Receipt Date: 20080411
  Transmission Date: 20081010
  Serious: Yes (Life-Threatening, Hospitalization)
  Sender: FDA-Public Use
  Company Number: None

PATIENT
  Age: 34 Year
  Sex: Female
  Weight: 89.3586 kg

DRUGS (1)
  1. OCTAGAM [Suspect]
     Dosage: 800 ML DAILY IV 3 DOSES
     Route: 042
     Dates: start: 20080303, end: 20080306

REACTIONS (2)
  - BLOOD GLUCOSE DECREASED [None]
  - DEVICE MALFUNCTION [None]
